FAERS Safety Report 8815598 (Version 1)
Quarter: 2012Q4

REPORT INFORMATION
  Report Type: 
  Country: US (occurrence: US)
  Receive Date: 20120928
  Receipt Date: 20120928
  Transmission Date: 20130627
  Serious: Yes (Other)
  Sender: FDA-Public Use
  Company Number: US-BRISTOL-MYERS SQUIBB COMPANY-16972986

PATIENT
  Age: 68 Year
  Sex: Male

DRUGS (3)
  1. LEVODOPA + CARBIDOPA [Suspect]
     Dosage: 1 df=50mg/200mg.
  2. DONEPEZIL [Suspect]
  3. QUETIAPINE [Suspect]

REACTIONS (12)
  - Delusion [Unknown]
  - Delusion of replacement [None]
  - Hallucination, visual [None]
  - Metamorphopsia [None]
  - Cerebral atrophy [None]
  - Cerebral microangiopathy [None]
  - Resting tremor [None]
  - Masked facies [None]
  - Executive dysfunction [None]
  - Memory impairment [None]
  - Expressive language disorder [None]
  - Pneumonia aspiration [None]
